FAERS Safety Report 4788343-3 (Version None)
Quarter: 2005Q4

REPORT INFORMATION
  Report Type: 
  Country: None (occurrence: None)
  Receive Date: 20051003
  Receipt Date: 20050923
  Transmission Date: 20060501
  Serious: Yes (Hospitalization, Other)
  Sender: FDA-Public Use
  Company Number: KII-2005-0018769

PATIENT
  Age: 51 Year
  Sex: Female

DRUGS (6)
  1. MORPHINE SULFATE [Suspect]
     Indication: PAIN
     Dosage: ORAL
     Route: 048
  2. ACETAMINOPHEN AND OXYCODONE HCL [Suspect]
     Indication: PAIN
     Dosage: ORAL
     Route: 048
  3. ACETAMINOPHEN W/HYDROCODONE BITARTRATE (PARACETAMOL, HYROCODONE BITART [Suspect]
     Indication: PAIN
     Dosage: ORAL
     Route: 048
  4. PHENCYCLIDINE (PHENCYCLIDINE) [Suspect]
  5. BENZODIAZEPINE DERIVATIVES [Suspect]
     Dosage: ORAL
     Route: 048
  6. ANTIEPILEPTICS [Suspect]
     Dosage: ORAL
     Route: 048

REACTIONS (3)
  - DRUG ABUSER [None]
  - INCOHERENT [None]
  - LETHARGY [None]
